FAERS Safety Report 8854816 (Version 1)
Quarter: 2012Q4

REPORT INFORMATION
  Report Type: 
  Country: GB (occurrence: GB)
  Receive Date: 20121023
  Receipt Date: 20121023
  Transmission Date: 20130627
  Serious: Yes (Hospitalization)
  Sender: FDA-Public Use
  Company Number: PHFR2012GB005518

PATIENT
  Age: 36 Year
  Sex: Male

DRUGS (1)
  1. CLOZARIL [Suspect]
     Indication: MENTAL IMPAIRMENT
     Dosage: 550 mg, (125 mg  at 8 hr and 425 mg at 18 hr)
     Route: 048
     Dates: start: 20120201, end: 20120718

REACTIONS (1)
  - Mental impairment [Unknown]
